FAERS Safety Report 6640041-7 (Version None)
Quarter: 2010Q1

REPORT INFORMATION
  Report Type: 
  Country: None (occurrence: None)
  Receive Date: 20100318
  Receipt Date: 20100312
  Transmission Date: 20100710
  Serious: Yes (Hospitalization)
  Sender: FDA-Public Use
  Company Number: US-SANOFI-AVENTIS-2010SA004883

PATIENT
  Age: 54 Year
  Sex: Male
  Weight: 53.3 kg

DRUGS (10)
  1. OXALIPLATIN [Suspect]
     Route: 042
     Dates: start: 20090421, end: 20090421
  2. OXALIPLATIN [Suspect]
     Route: 042
     Dates: start: 20100104, end: 20100104
  3. SORAFENIB [Suspect]
     Route: 048
     Dates: start: 20090421
  4. XELODA [Concomitant]
     Route: 048
  5. REGLAN /YUG/ [Concomitant]
  6. MORPHINE [Concomitant]
  7. SPIRONOLACTONE [Concomitant]
  8. METHADONE HCL [Concomitant]
  9. PREVACID [Concomitant]
  10. LASIX [Concomitant]

REACTIONS (4)
  - GASTROINTESTINAL HAEMORRHAGE [None]
  - GASTROINTESTINAL STENOSIS [None]
  - HAEMOGLOBIN DECREASED [None]
  - SYNCOPE [None]
